FAERS Safety Report 21976890 (Version 1)
Quarter: 2023Q1

REPORT INFORMATION
  Report Type: Spontaneous
  Country: US (occurrence: US)
  Receive Date: 20230210
  Receipt Date: 20230210
  Transmission Date: 20230417
  Serious: Yes (Other)
  Sender: FDA-Public Use
  Company Number: US-Hikma Pharmaceuticals USA Inc.-US-H14001-23-00335

PATIENT
  Age: 4 Decade
  Sex: Female

DRUGS (2)
  1. LITHIUM [Suspect]
     Active Substance: LITHIUM
     Indication: Product used for unknown indication
     Route: 065
  2. LITHIUM [Suspect]
     Active Substance: LITHIUM
     Route: 065

REACTIONS (2)
  - Depression [Unknown]
  - Suicidal ideation [Unknown]
